FAERS Safety Report 6731627-X (Version None)
Quarter: 2010Q2

REPORT INFORMATION
  Report Type: 
  Country: None (occurrence: None)
  Receive Date: 20100518
  Receipt Date: 20100518
  Transmission Date: 20101027
  Serious: Yes (Other)
  Sender: FDA-Public Use
  Company Number: None

PATIENT
  Age: 63 Year
  Sex: Male

DRUGS (3)
  1. HEPARIN [Suspect]
     Indication: ATRIAL FIBRILLATION
     Dosage: 950 UNITS/HR CONTINUOUS IV DRIP
     Route: 041
     Dates: start: 20100118, end: 20100126
  2. HEPARIN [Suspect]
     Indication: CEREBROVASCULAR ACCIDENT
     Dosage: 950 UNITS/HR CONTINUOUS IV DRIP
     Route: 041
     Dates: start: 20100118, end: 20100126
  3. HEPARIN [Suspect]
     Indication: PULMONARY EMBOLISM
     Dosage: 950 UNITS/HR CONTINUOUS IV DRIP
     Route: 041
     Dates: start: 20100118, end: 20100126

REACTIONS (1)
  - POST PROCEDURAL HAEMORRHAGE [None]
